FAERS Safety Report 8365764-3 (Version None)
Quarter: 2012Q2

REPORT INFORMATION
  Report Type: 
  Country: None (occurrence: None)
  Receive Date: 20120516
  Receipt Date: 20120510
  Transmission Date: 20120825
  Serious: Yes (Other)
  Sender: FDA-Public Use
  Company Number: CH-AMGEN-CHESP2012029373

PATIENT
  Age: 56 Year
  Sex: Female

DRUGS (2)
  1. PROLIA [Suspect]
     Indication: OSTEOPOROSIS
     Dosage: 60 MG, Q6MO
     Route: 058
     Dates: start: 20111201
  2. PROLIA [Suspect]
     Indication: PATHOLOGICAL FRACTURE

REACTIONS (5)
  - HEADACHE [None]
  - NAUSEA [None]
  - BRADYCARDIA [None]
  - HYPERTENSION [None]
  - MUSCULOSKELETAL PAIN [None]
